FAERS Safety Report 9187529 (Version 2)
Quarter: 2013Q2

REPORT INFORMATION
  Report Type: Report from Study
  Country: DE (occurrence: DE)
  Receive Date: 20130325
  Receipt Date: 20130507
  Transmission Date: 20140414
  Serious: Yes (Hospitalization)
  Sender: FDA-Public Use
  Company Number: DE-UCBSA-081157

PATIENT
  Age: 25 Year
  Sex: Female

DRUGS (7)
  1. VIMPAT [Suspect]
     Indication: EPILEPSY
     Dosage: DOSE: 100 MG
     Dates: start: 20081022
  2. VIMPAT [Suspect]
     Indication: EPILEPSY
     Dosage: DOSE: 400 MG
  3. LEVETIRACETAM [Concomitant]
     Indication: EPILEPSY
     Dosage: DOSE: 4000MG
     Dates: end: 2009
  4. OXCARBAZEPINE [Concomitant]
     Indication: EPILEPSY
     Dosage: DOSE: 2400 MG
  5. TOPIRAMATE [Concomitant]
     Indication: EPILEPSY
     Dosage: DOSE: 100 MG
     Dates: end: 2009
  6. VALPROATE [Concomitant]
     Indication: EPILEPSY
     Dosage: DOSE: 1200 MG
     Dates: start: 2009, end: 2009
  7. VALPROATE [Concomitant]
     Indication: EPILEPSY
     Dosage: DOSE: 7500 MG
     Dates: start: 2009

REACTIONS (1)
  - Status epilepticus [Unknown]
